FAERS Safety Report 6109624-7 (Version None)
Quarter: 2009Q1

REPORT INFORMATION
  Report Type: 
  Country: None (occurrence: None)
  Receive Date: 20090306
  Receipt Date: 20090225
  Transmission Date: 20090719
  Serious: Yes (Other)
  Sender: FDA-Public Use
  Company Number: CHPA2009US05528

PATIENT
  Age: 16 Year
  Sex: Female

DRUGS (3)
  1. BENEFIBER W/ WHEAT DEXTRIN (NCH) (WHEAT DEXTRIN POWDER) [Suspect]
     Indication: WEIGHT CONTROL
     Dosage: THREE QUARTER OF BOTTLE, ONCE/SINGLE, ORAL
     Route: 048
     Dates: start: 20090224, end: 20090224
  2. DRUG THERAPY NOS (DRUG THERAPY NOS) [Concomitant]
  3. CONTRACEPTIVES NOS (NO INGREDIENTS/SUBSTANCES) [Concomitant]

REACTIONS (7)
  - DIARRHOEA [None]
  - DRUG EXPOSURE DURING PREGNANCY [None]
  - HAEMATEMESIS [None]
  - INTENTIONAL DRUG MISUSE [None]
  - MALAISE [None]
  - NAUSEA [None]
  - OVERDOSE [None]
